FAERS Safety Report 16048852 (Version 2)
Quarter: 2019Q1

REPORT INFORMATION
  Report Type: Spontaneous
  Country: US (occurrence: US)
  Receive Date: 20190307
  Receipt Date: 20190323
  Transmission Date: 20190418
  Serious: No
  Sender: FDA-Public Use
  Company Number: US-JNJFOC-20190138050

PATIENT
  Age: 62 Year
  Sex: Male
  Weight: 83.92 kg

DRUGS (2)
  1. TYLENOL EXTRA STRENGTH [Suspect]
     Active Substance: ACETAMINOPHEN
     Indication: HEAD INJURY
     Route: 048
     Dates: start: 20190117, end: 20190121
  2. TYLENOL EXTRA STRENGTH [Suspect]
     Active Substance: ACETAMINOPHEN
     Indication: SLEEP DISORDER THERAPY
     Route: 048
     Dates: start: 20190117, end: 20190121

REACTIONS (4)
  - Product use in unapproved indication [Unknown]
  - Product use complaint [None]
  - Hypersensitivity [Recovering/Resolving]
  - Drug hypersensitivity [None]

NARRATIVE: CASE EVENT DATE: 20190117
